FAERS Safety Report 8919209 (Version 1)
Quarter: 2012Q4

REPORT INFORMATION
  Report Type: 
  Country: US (occurrence: US)
  Receive Date: 20121121
  Receipt Date: 20121121
  Transmission Date: 20130627
  Serious: Yes (Other)
  Sender: FDA-Public Use
  Company Number: US-SANOFI-AVENTIS-2012SA073726

PATIENT
  Sex: Male

DRUGS (4)
  1. LANTUS SOLOSTAR [Suspect]
     Dosage: took 10units and 21units.
     Route: 058
     Dates: start: 201209
  2. SOLOSTAR [Suspect]
     Dates: start: 201209
  3. METFORMIN [Concomitant]
  4. VICTOZA [Concomitant]

REACTIONS (6)
  - Hypotension [Not Recovered/Not Resolved]
  - Presyncope [Unknown]
  - Blood glucose increased [Unknown]
  - Blood glucose decreased [Unknown]
  - Dizziness [Unknown]
  - Fall [Unknown]
